FAERS Safety Report 8386645-5 (Version None)
Quarter: 2012Q2

REPORT INFORMATION
  Report Type: 
  Country: None (occurrence: None)
  Receive Date: 20120525
  Receipt Date: 20120522
  Transmission Date: 20120825
  Serious: No
  Sender: FDA-Public Use
  Company Number: US-PFIZER INC-2012124073

PATIENT
  Sex: Female
  Weight: 79 kg

DRUGS (3)
  1. NEURONTIN [Suspect]
     Indication: SPINAL COLUMN STENOSIS
     Dosage: 300 MG, 4X/DAY
     Route: 048
     Dates: start: 20120206, end: 20120201
  2. CELEXA [Concomitant]
     Indication: DEPRESSION
     Dosage: UNK, 1X/DAY
  3. NEURONTIN [Suspect]
     Indication: NERVE COMPRESSION
     Dosage: 300 MG, 2X/DAY
     Route: 048
     Dates: start: 20120201

REACTIONS (3)
  - CONSTIPATION [None]
  - ABNORMAL DREAMS [None]
  - PAIN [None]
